FAERS Safety Report 6680103-1 (Version None)
Quarter: 2010Q2

REPORT INFORMATION
  Report Type: 
  Country: None (occurrence: None)
  Receive Date: 20100413
  Receipt Date: 20100406
  Transmission Date: 20101027
  Serious: Yes (Hospitalization)
  Sender: FDA-Public Use
  Company Number: US-WATSON-2010-04155

PATIENT
  Age: 49 Year
  Sex: Female

DRUGS (4)
  1. FENTANYL-50 [Suspect]
     Indication: PAIN
     Dosage: 1 PATCH, Q72H (HAD 2 PATCHES ON AT THE TIME OF ER)
     Route: 062
     Dates: start: 20100318
  2. FENTANYL-50 [Suspect]
     Dosage: 1 PATCH, Q72H
     Route: 062
     Dates: start: 20100101, end: 20100317
  3. ESTROGEN NOS [Concomitant]
     Indication: HORMONE THERAPY
     Dosage: 1 TABLET, DAILY
     Route: 048
  4. LEXAPRO [Concomitant]
     Indication: DEPRESSION
     Dosage: 1 TABLET, DAILY
     Route: 048

REACTIONS (8)
  - BIPOLAR DISORDER [None]
  - CONFUSIONAL STATE [None]
  - DEPERSONALISATION [None]
  - DRUG ABUSER [None]
  - INCOHERENT [None]
  - MEMORY IMPAIRMENT [None]
  - NIGHTMARE [None]
  - OVERDOSE [None]
